FAERS Safety Report 11359381 (Version 1)
Quarter: 2015Q3

REPORT INFORMATION
  Report Type: Spontaneous
  Country: US (occurrence: None)
  Receive Date: 20150722
  Receipt Date: 20150722
  Transmission Date: 20151125
  Serious: Yes (Other)
  Sender: FDA-Public Use
  Company Number: 2015RIT000018

PATIENT
  Age: 74 Year
  Sex: Male
  Weight: 72.6 kg

DRUGS (3)
  1. CIPRO /00697201/(CIPROFLOXACIN) [Concomitant]
  2. PREDNISONE (PREDNISONE) [Concomitant]
     Active Substance: PREDNISONE
  3. IPRATROPIUM BROMIDE AND ALBUTEROL SULFATE INHALATION SOLUTION (SALBUTAMOL SULFATE, IPRATROPIUM BROMIDE) UNKNOWN [Suspect]
     Active Substance: ALBUTEROL SULFATE\IPRATROPIUM BROMIDE
     Indication: DYSPNOEA
     Dates: start: 201312

REACTIONS (5)
  - Bronchial secretion retention [None]
  - Bronchitis [None]
  - Productive cough [None]
  - Pneumonia staphylococcal [None]
  - Oropharyngeal pain [None]

NARRATIVE: CASE EVENT DATE: 20150517
